FAERS Safety Report 7647885-3 (Version None)
Quarter: 2011Q3

REPORT INFORMATION
  Report Type: 
  Country: None (occurrence: None)
  Receive Date: 20110801
  Receipt Date: 20110526
  Transmission Date: 20111222
  Serious: No
  Sender: FDA-Public Use
  Company Number: US-ABBOTT-11P-163-0804616-00

PATIENT
  Sex: Female
  Weight: 52.272 kg

DRUGS (3)
  1. PANCREATIN TRIPLE STRENGTH CAP [Suspect]
     Dosage: DAILY DOSE: 72000, AS USED: 24000, FREQUENCY: THREE TIMES A DAY
     Route: 065
     Dates: start: 20110501
  2. PANTOPRAZOLE SODIUM [Concomitant]
     Indication: GASTRIC ULCER
     Dosage: DAILY DOSE:  UNKNOWN
     Route: 065
  3. PANCREATIN TRIPLE STRENGTH CAP [Suspect]
     Indication: PANCREATECTOMY
     Dosage: DAILY DOSE:144000 UNITS,AS USED:48000 UNIT,UNIT:24000 OTHER,FREQUENCY:3 TIMES DAILY;2 CAP, EACH MEAL
     Route: 065
     Dates: start: 20100401, end: 20110501

REACTIONS (1)
  - WEIGHT DECREASED [None]
